FAERS Safety Report 12444665 (Version 1)
Quarter: 2016Q2

REPORT INFORMATION
  Report Type: Spontaneous
  Country: US (occurrence: US)
  Receive Date: 20160607
  Receipt Date: 20160607
  Transmission Date: 20160815
  Serious: Yes (Other)
  Sender: FDA-Public Use
  Company Number: US-FRI-1000085161

PATIENT
  Age: 81 Year

DRUGS (1)
  1. LINZESS [Suspect]
     Active Substance: LINACLOTIDE
     Indication: CONSTIPATION

REACTIONS (2)
  - Angina pectoris [Recovered/Resolved]
  - Drug ineffective [Recovered/Resolved]
